FAERS Safety Report 10529456 (Version 1)
Quarter: 2014Q4

REPORT INFORMATION
  Report Type: Spontaneous
  Country: CA (occurrence: CA)
  Receive Date: 20141021
  Receipt Date: 20141021
  Transmission Date: 20150528
  Serious: Yes (Other)
  Sender: FDA-Public Use
  Company Number: CA-009507513-1410CAN009352

PATIENT
  Age: 20 Year
  Sex: Female
  Weight: 51 kg

DRUGS (4)
  1. PMS OLANZAPINE [Suspect]
     Active Substance: OLANZAPINE
     Dosage: 2.5 MG, UNK
     Route: 048
  2. PMS ONDANSETRON [Suspect]
     Active Substance: ONDANSETRON
     Dosage: 16 MG, UNK
     Route: 048
  3. DEXAMETHASONE. [Suspect]
     Active Substance: DEXAMETHASONE
     Dosage: 4 MG, UNK
     Route: 048
  4. EMEND [Suspect]
     Active Substance: APREPITANT
     Dosage: 125 MG, UNK
     Route: 048

REACTIONS (5)
  - Abdominal discomfort [Recovered/Resolved]
  - Blood pressure decreased [Recovered/Resolved]
  - Cyanosis [Recovered/Resolved]
  - Dizziness [Recovered/Resolved]
  - Vision blurred [Recovered/Resolved]
